FAERS Safety Report 24248328 (Version 1)
Quarter: 2024Q3

REPORT INFORMATION
  Report Type: Spontaneous
  Country: US (occurrence: None)
  Receive Date: 20240823
  Receipt Date: 20240823
  Transmission Date: 20241017
  Serious: No
  Sender: Public
  Company Number: None

PATIENT
  Age: 40 Year
  Sex: Male

DRUGS (1)
  1. MIXTARD HUMAN 70/30 [Suspect]
     Active Substance: INSULIN HUMAN

REACTIONS (8)
  - Pyrexia [None]
  - Chills [None]
  - Chest pain [None]
  - Vomiting [None]
  - Diarrhoea [None]
  - Product label confusion [None]
  - Product prescribing issue [None]
  - Incorrect dose administered [None]
